FAERS Safety Report 7666206-3 (Version None)
Quarter: 2011Q3

REPORT INFORMATION
  Report Type: 
  Country: None (occurrence: None)
  Receive Date: 20110806
  Receipt Date: 20110324
  Transmission Date: 20111222
  Serious: No
  Sender: FDA-Public Use
  Company Number: US-ABBOTT-11P-163-0714503-00

PATIENT
  Sex: Male
  Weight: 83.536 kg

DRUGS (4)
  1. PLAVIX [Concomitant]
     Indication: THROMBOSIS PROPHYLAXIS
  2. NIASPAN [Suspect]
     Indication: BLOOD CHOLESTEROL INCREASED
     Dates: start: 20110220
  3. CRESTOR [Concomitant]
     Indication: BLOOD CHOLESTEROL INCREASED
  4. ATACAND [Concomitant]
     Indication: HYPERTENSION

REACTIONS (2)
  - FLATULENCE [None]
  - FREQUENT BOWEL MOVEMENTS [None]
